FAERS Safety Report 5777132-9 (Version None)
Quarter: 2008Q2

REPORT INFORMATION
  Report Type: 
  Country: None (occurrence: None)
  Receive Date: 20080618
  Receipt Date: 20080610
  Transmission Date: 20081010
  Serious: Yes (Hospitalization)
  Sender: FDA-Public Use
  Company Number: JP-ASTRAZENECA-2008AP04269

PATIENT
  Age: 21094 Day
  Sex: Female

DRUGS (14)
  1. SEROQUEL [Suspect]
     Indication: PSYCHOTIC DISORDER
     Route: 048
     Dates: start: 20080115, end: 20080427
  2. AMOBAN [Concomitant]
     Indication: PSYCHOTIC DISORDER
     Route: 048
     Dates: start: 20070629
  3. GLYSENNID [Concomitant]
     Indication: PSYCHOTIC DISORDER
     Route: 048
     Dates: start: 20070629
  4. MAGMITT [Concomitant]
     Indication: PSYCHOTIC DISORDER
     Route: 048
     Dates: start: 20070629
  5. PAXIL [Concomitant]
     Indication: PSYCHOTIC DISORDER
     Route: 048
     Dates: start: 20071009
  6. DEPAS [Concomitant]
     Indication: PSYCHOTIC DISORDER
     Route: 048
     Dates: start: 20070629
  7. PREDONINE [Concomitant]
     Indication: RHEUMATOID ARTHRITIS
     Route: 048
  8. LOXONIN [Concomitant]
     Indication: RHEUMATOID ARTHRITIS
     Route: 048
  9. FAMOTIDINE [Concomitant]
     Indication: RHEUMATOID ARTHRITIS
     Route: 048
  10. AZULFIDINE EN-TABS [Concomitant]
     Indication: RHEUMATOID ARTHRITIS
     Route: 048
  11. MOVER [Concomitant]
     Indication: RHEUMATOID ARTHRITIS
     Route: 048
  12. CYTOTEC [Concomitant]
     Indication: RHEUMATOID ARTHRITIS
     Route: 048
  13. THYRADIN [Concomitant]
     Indication: HYPERTHYROIDISM
     Route: 048
  14. ZOVIRAX [Concomitant]
     Indication: HERPES ZOSTER
     Dates: start: 20080424, end: 20080428

REACTIONS (1)
  - WHITE BLOOD CELL COUNT DECREASED [None]
